FAERS Safety Report 6255908-1 (Version None)
Quarter: 2009Q3

REPORT INFORMATION
  Report Type: 
  Country: None (occurrence: None)
  Receive Date: 20090703
  Receipt Date: 20090624
  Transmission Date: 20100115
  Serious: Yes (Other)
  Sender: FDA-Public Use
  Company Number: US-MYLANLABS-2009S1011277

PATIENT
  Age: 39 Year
  Sex: Female
  Weight: 65.77 kg

DRUGS (9)
  1. FENTANYL TRANSDERMAL SYSTEM [Suspect]
     Indication: NECK PAIN
     Dosage: CHANGED PATCHES Q3D
     Route: 062
     Dates: start: 20081201, end: 20090501
  2. FENTANYL TRANSDERMAL SYSTEM [Suspect]
     Indication: ARTHRALGIA
     Dosage: CHANGED PATCHES Q3D
     Route: 062
     Dates: start: 20081201, end: 20090501
  3. FENTANYL TRANSDERMAL SYSTEM [Suspect]
     Dosage: CHANGED PATCHES Q3D
     Route: 062
     Dates: start: 20090501, end: 20090620
  4. FENTANYL TRANSDERMAL SYSTEM [Suspect]
     Dosage: CHANGED PATCHES Q3D
     Route: 062
     Dates: start: 20090501, end: 20090620
  5. FENTANYL TRANSDERMAL SYSTEM [Suspect]
     Dosage: CHANGED PATCHES Q3D
     Route: 062
     Dates: start: 20090621
  6. FENTANYL TRANSDERMAL SYSTEM [Suspect]
     Dosage: CHANGED PATCHES Q3D
     Route: 062
     Dates: start: 20090621
  7. HYDROCODONE BITARTRATE [Concomitant]
     Indication: BREAKTHROUGH PAIN
     Route: 048
  8. ESTROGEN [Concomitant]
     Indication: HORMONE REPLACEMENT THERAPY
     Route: 062
  9. ALBUTEROL [Concomitant]

REACTIONS (6)
  - DRUG WITHDRAWAL SYNDROME [None]
  - INFLUENZA LIKE ILLNESS [None]
  - LETHARGY [None]
  - NAUSEA [None]
  - VERTIGO [None]
  - VOMITING [None]
